FAERS Safety Report 6080422-6 (Version None)
Quarter: 2009Q1

REPORT INFORMATION
  Report Type: 
  Country: None (occurrence: None)
  Receive Date: 20090217
  Receipt Date: 20090209
  Transmission Date: 20090719
  Serious: Yes (Other)
  Sender: FDA-Public Use
  Company Number: PHHY2008AU30596

PATIENT
  Sex: Male

DRUGS (2)
  1. GLEEVEC [Suspect]
     Indication: CHRONIC MYELOID LEUKAEMIA
     Dosage: 400 MG, UNK
     Dates: start: 20071101
  2. CODEINE SUL TAB [Concomitant]
     Dosage: UNK
     Dates: start: 20070704

REACTIONS (7)
  - FATIGUE [None]
  - GAIT DISTURBANCE [None]
  - HEADACHE [None]
  - MUSCLE SPASMS [None]
  - OSTEOARTHRITIS [None]
  - PHOTOPHOBIA [None]
  - VISUAL IMPAIRMENT [None]
